FAERS Safety Report 6895425-9 (Version None)
Quarter: 2010Q3

REPORT INFORMATION
  Report Type: 
  Country: None (occurrence: None)
  Receive Date: 20100802
  Receipt Date: 20100719
  Transmission Date: 20110219
  Serious: Yes (Hospitalization, Disabling)
  Sender: FDA-Public Use
  Company Number: HR-ROCHE-674413

PATIENT
  Sex: Male
  Weight: 68.8 kg

DRUGS (13)
  1. METHOXY POLYETHYLENE GLYCOL-EPOETIN BETA [Suspect]
     Route: 058
     Dates: start: 20090608
  2. METHOXY POLYETHYLENE GLYCOL-EPOETIN BETA [Suspect]
     Dosage: LAST DOSE PRIOR TO SAE: 07 DECEMBER 2009
     Route: 058
  3. METHOXY POLYETHYLENE GLYCOL-EPOETIN BETA [Suspect]
     Dosage: LAST DOSE PRIOR TO EVENT: 09 JULY 2010
     Route: 058
  4. CALCIUM CARBONATE [Concomitant]
     Dates: start: 20080630
  5. CARVEDILOL [Concomitant]
     Dates: start: 20090531
  6. AMLODIPINE [Concomitant]
     Dates: start: 20071005
  7. ISOSORBIDE MONONITRATE [Concomitant]
     Dates: start: 20070730
  8. LISINOPRIL [Concomitant]
     Dates: start: 20071005
  9. PANTOPRAZOLE SODIUM [Concomitant]
     Dates: start: 20090123
  10. CALCITRIOL [Concomitant]
     Dates: start: 20080516
  11. FOLIC ACID [Concomitant]
     Dates: start: 20090814
  12. GLIQUIDONE [Concomitant]
     Dates: start: 20070915
  13. GLIQUIDONE [Concomitant]
     Dates: start: 20091228

REACTIONS (5)
  - ARTERIOVENOUS FISTULA THROMBOSIS [None]
  - CAROTID ARTERY STENOSIS [None]
  - CEREBROVASCULAR ACCIDENT [None]
  - FEMORAL ARTERY OCCLUSION [None]
  - PERIPHERAL ARTERIAL OCCLUSIVE DISEASE [None]
